FAERS Safety Report 5656516-3 (Version None)
Quarter: 2008Q1

REPORT INFORMATION
  Report Type: 
  Country: None (occurrence: None)
  Receive Date: 20080309
  Receipt Date: 20080129
  Transmission Date: 20080703
  Serious: No
  Sender: FDA-Public Use
  Company Number: US-BAYER-200810470BCC

PATIENT
  Age: 55 Year
  Sex: Female
  Weight: 52 kg

DRUGS (3)
  1. ALEVE [Suspect]
     Indication: HEADACHE
     Dosage: AS USED: 440-660 MG  UNIT DOSE: 220 MG
     Route: 048
     Dates: start: 20080123
  2. KLONOPIN [Concomitant]
  3. UNKNOWN HIGH BLOOD PRESSURE MEDICATION [Concomitant]

REACTIONS (5)
  - DERMATITIS CONTACT [None]
  - DIARRHOEA [None]
  - NAUSEA [None]
  - PRURITUS [None]
  - RASH PAPULAR [None]
